FAERS Safety Report 6337018-8 (Version None)
Quarter: 2009Q3

REPORT INFORMATION
  Report Type: 
  Country: None (occurrence: None)
  Receive Date: 20090831
  Receipt Date: 20090804
  Transmission Date: 20100115
  Serious: Yes (Hospitalization, Other)
  Sender: FDA-Public Use
  Company Number: ADE#  09-363DPR

PATIENT
  Age: 86 Year
  Sex: Female

DRUGS (1)
  1. DIGOXIN [Suspect]

REACTIONS (7)
  - ABASIA [None]
  - ASTHENIA [None]
  - ECONOMIC PROBLEM [None]
  - FALL [None]
  - HEAD INJURY [None]
  - MALAISE [None]
  - THERAPEUTIC AGENT TOXICITY [None]
